FAERS Safety Report 15610509 (Version 2)
Quarter: 2019Q4

REPORT INFORMATION
  Report Type: Spontaneous
  Country: US (occurrence: US)
  Receive Date: 20181113
  Receipt Date: 20191104
  Transmission Date: 20200122
  Serious: Yes (Hospitalization)
  Sender: FDA-Public Use
  Company Number: US-ROCHE-2012164

PATIENT
  Sex: Male
  Weight: 51.3 kg

DRUGS (7)
  1. ESOMEPRAZOLE. [Concomitant]
     Active Substance: ESOMEPRAZOLE MAGNESIUM
     Dosage: ONGOING: UNKNOWN
     Route: 048
     Dates: start: 20170509
  2. VANCOMYCIN [Concomitant]
     Active Substance: VANCOMYCIN
     Dosage: ONGOING: UNKNOWN
     Route: 042
     Dates: start: 20170509
  3. ORKAMBI [Concomitant]
     Active Substance: IVACAFTOR\LUMACAFTOR
     Route: 048
     Dates: start: 20170509, end: 20180822
  4. PULMOZYME [Suspect]
     Active Substance: DORNASE ALFA
     Dosage: ONGOING: UNKNOWN, STRENGTH: 1 MG/ML
     Route: 055
     Dates: start: 20180828
  5. CHOLESTIN [Concomitant]
     Dosage: ONGOING: UNKNOWN
     Route: 048
     Dates: start: 20170509
  6. ADVAIR HFA [Concomitant]
     Active Substance: FLUTICASONE PROPIONATE\SALMETEROL XINAFOATE
     Dosage: ONGOING: UNKNOWN
     Route: 065
     Dates: start: 20170509
  7. PULMOZYME [Suspect]
     Active Substance: DORNASE ALFA
     Indication: CYSTIC FIBROSIS
     Dosage: STRENGTH: 1MG/ML 2.5 ML, 1 AMPOULE VIA NEBULIZER ONC
     Route: 055
     Dates: start: 20061107

REACTIONS (1)
  - Viral infection [Recovered/Resolved]
